FAERS Safety Report 17524482 (Version 1)
Quarter: 2020Q1

REPORT INFORMATION
  Report Type: Spontaneous
  Country: IL (occurrence: IL)
  Receive Date: 20200310
  Receipt Date: 20200310
  Transmission Date: 20200409
  Serious: Yes (Other)
  Sender: FDA-Public Use
  Company Number: NVSC2020IL064531

PATIENT
  Age: 56 Year
  Sex: Male

DRUGS (1)
  1. NITRODERM [Suspect]
     Active Substance: NITROGLYCERIN
     Indication: PRODUCT USED FOR UNKNOWN INDICATION
     Dosage: 5 OT (5 PATCH)
     Route: 062

REACTIONS (3)
  - Rash [Unknown]
  - Dyspnoea [Unknown]
  - Pruritus [Unknown]
